FAERS Safety Report 9175842 (Version 1)
Quarter: 2013Q1

REPORT INFORMATION
  Report Type: Spontaneous
  Country: US (occurrence: US)
  Receive Date: 20130320
  Receipt Date: 20130320
  Transmission Date: 20140127
  Serious: Yes (Death)
  Sender: FDA-Public Use
  Company Number: US-JNJFOC-20090802417

PATIENT
  Age: 42 Year
  Sex: Male

DRUGS (3)
  1. IBUPROFEN [Suspect]
     Indication: COMPLETED SUICIDE
     Route: 048
  2. VENLAFAXINE [Suspect]
     Indication: COMPLETED SUICIDE
     Route: 048
  3. METFORMIN [Suspect]
     Indication: PRODUCT USED FOR UNKNOWN INDICATION
     Route: 065

REACTIONS (10)
  - Stupor [Fatal]
  - Convulsion [Fatal]
  - Respiratory disorder [Fatal]
  - Hypotension [Fatal]
  - Suicide attempt [Fatal]
  - Unresponsive to stimuli [None]
  - Lung infiltration [None]
  - Cardio-respiratory arrest [None]
  - Completed suicide [None]
  - Antidepressant drug level above therapeutic [None]
